FAERS Safety Report 11111918 (Version 1)
Quarter: 2015Q2

REPORT INFORMATION
  Report Type: Spontaneous
  Country: US (occurrence: None)
  Receive Date: 20150513
  Receipt Date: 20150513
  Transmission Date: 20150821
  Serious: No
  Sender: FDA-Public Use
  Company Number: None

PATIENT
  Age: 62 Year
  Sex: Male
  Weight: 158.76 kg

DRUGS (2)
  1. ASPIRIN. [Concomitant]
     Active Substance: ASPIRIN
  2. LOSARTAN [Suspect]
     Active Substance: LOSARTAN
     Indication: HYPERTENSION
     Dates: start: 20150401, end: 20150511

REACTIONS (2)
  - Vision blurred [None]
  - Back pain [None]

NARRATIVE: CASE EVENT DATE: 20150511
